FAERS Safety Report 15287161 (Version 2)
Quarter: 2019Q2

REPORT INFORMATION
  Report Type: Report from Study
  Country: AR (occurrence: AR)
  Receive Date: 20180817
  Receipt Date: 20190430
  Transmission Date: 20190711
  Serious: Yes (Other)
  Sender: FDA-Public Use
  Company Number: AR-BRISTOL-MYERS SQUIBB COMPANY-BMS-2018-077006

PATIENT
  Age: 70 Year
  Sex: Female

DRUGS (1)
  1. APIXABAN [Suspect]
     Active Substance: APIXABAN
     Indication: PRODUCT USED FOR UNKNOWN INDICATION
     Dosage: 5 MILLIGRAM
     Route: 065

REACTIONS (6)
  - Gastrointestinal disorder [Unknown]
  - Spinal column injury [Unknown]
  - Gait disturbance [Unknown]
  - Humerus fracture [Unknown]
  - Fall [Unknown]
  - Osteitis [Unknown]

NARRATIVE: CASE EVENT DATE: 201702
